FAERS Safety Report 6293347-8 (Version None)
Quarter: 2009Q3

REPORT INFORMATION
  Report Type: 
  Country: None (occurrence: None)
  Receive Date: 20090731
  Receipt Date: 20090324
  Transmission Date: 20100115
  Serious: Yes (Hospitalization)
  Sender: FDA-Public Use
  Company Number: PHHY2009DE30540

PATIENT
  Age: 64 Year
  Sex: Male

DRUGS (1)
  1. FORADIL [Suspect]
     Dosage: UNK
     Dates: start: 20030101, end: 20090101

REACTIONS (2)
  - CONCOMITANT DISEASE PROGRESSION [None]
  - RHINORRHOEA [None]
